FAERS Safety Report 4800769-8 (Version None)
Quarter: 2005Q3

REPORT INFORMATION
  Report Type: 
  Country: None (occurrence: None)
  Receive Date: 20050929
  Receipt Date: 20050722
  Transmission Date: 20060218
  Serious: No
  Sender: FDA-Public Use
  Company Number: 05P-163-0306364-00

PATIENT
  Age: 69 Year
  Sex: Female
  Weight: 58.9676 kg

DRUGS (7)
  1. HUMIRA [Suspect]
     Indication: RHEUMATOID ARTHRITIS
     Dosage: 40 MG, 1 IN 2 WK, SUBCUTNEOUS
     Route: 058
     Dates: start: 20041201
  2. HUMIRA [Suspect]
     Indication: SCLERODERMA
     Dosage: 40 MG, 1 IN 2 WK, SUBCUTNEOUS
     Route: 058
     Dates: start: 20041201
  3. HUMIRA [Suspect]
     Indication: SYSTEMIC LUPUS ERYTHEMATOSUS
     Dosage: 40 MG, 1 IN 2 WK, SUBCUTNEOUS
     Route: 058
     Dates: start: 20041201
  4. FORTEO [Concomitant]
  5. LEVOTHYROXINE SODIUM [Concomitant]
  6. HYDROXYCHLOROQUINE PHOSPHATE [Concomitant]
  7. PREDNISONE [Concomitant]

REACTIONS (3)
  - INJECTION SITE NODULE [None]
  - INJECTION SITE PAIN [None]
  - INJECTION SITE SWELLING [None]
